FAERS Safety Report 6955312-4 (Version None)
Quarter: 2010Q3

REPORT INFORMATION
  Report Type: 
  Country: None (occurrence: None)
  Receive Date: 20100830
  Receipt Date: 20100824
  Transmission Date: 20110219
  Serious: Yes (Death)
  Sender: FDA-Public Use
  Company Number: PHHY2010JP54806

PATIENT
  Age: 60 Year
  Sex: Female

DRUGS (4)
  1. CYCLOSPORINE [Suspect]
     Indication: DERMATOMYOSITIS
     Dosage: 200 MG, DAILY
  2. PREDNISOLONE [Concomitant]
     Dosage: 60 MG, DAILY
  3. PREDNISOLONE [Concomitant]
     Dosage: 30 MG, DAILY
  4. PREDNISOLONE [Concomitant]
     Dosage: 60 MG, DAILY

REACTIONS (1)
  - PNEUMOCYSTIS JIROVECI PNEUMONIA [None]
